FAERS Safety Report 24243178 (Version 3)
Quarter: 2024Q4

REPORT INFORMATION
  Report Type: Report from Study
  Country: US (occurrence: US)
  Receive Date: 20240823
  Receipt Date: 20241209
  Transmission Date: 20250114
  Serious: Yes (Hospitalization, Other)
  Sender: UCB
  Company Number: US-UCBSA-2024036821

PATIENT
  Sex: Female
  Weight: 61 kg

DRUGS (16)
  1. FINTEPLA [Suspect]
     Active Substance: FENFLURAMINE
     Indication: Lennox-Gastaut syndrome
     Dosage: 5 MILLILITER, 2X/DAY (BID)
     Route: 048
     Dates: start: 20240531, end: 20240722
  2. CYPROHEPTADINE [Concomitant]
     Active Substance: CYPROHEPTADINE
     Indication: Product used for unknown indication
     Dosage: UNK
  3. NAYZILAM [Concomitant]
     Active Substance: MIDAZOLAM
     Indication: Product used for unknown indication
     Dosage: 5 MG/SPRAY (0.1)ML SPRAY, NON AERO1 SPRAY AS NEEDED
     Route: 045
     Dates: start: 20240711
  4. VALTOCO [Concomitant]
     Active Substance: DIAZEPAM
     Indication: Product used for unknown indication
     Dosage: 20 MILLIGRAM, AS NEEDED (PRN)
     Route: 045
     Dates: start: 20240711
  5. LIOTHYRONINE [Concomitant]
     Active Substance: LIOTHYRONINE
     Indication: Product used for unknown indication
     Dosage: 5 MICROGRAM DAILY
     Route: 048
  6. DROSPIRENONE [Concomitant]
     Active Substance: DROSPIRENONE
     Indication: Contraception
     Dosage: 4 MG (28 TABLET) DAILY
     Route: 048
  7. PHENAZOPYRIDINE [Concomitant]
     Active Substance: PHENAZOPYRIDINE
     Indication: Urinary tract infection
     Dosage: 200 MILLIGRAM
     Route: 048
  8. PHENAZOPYRIDINE [Concomitant]
     Active Substance: PHENAZOPYRIDINE
     Indication: Pain
  9. AMOXICILIN CLAV/POT [Concomitant]
     Indication: Product used for unknown indication
     Dosage: 400-57MG/5 ML SUSPENSION
     Route: 048
  10. CLOBETASOL [Concomitant]
     Active Substance: CLOBETASOL
     Indication: Product used for unknown indication
     Dosage: 0.05% SOLUTION SCALP
  11. LEVOTHYROXINE [Concomitant]
     Active Substance: LEVOTHYROXINE
     Indication: Product used for unknown indication
     Dosage: 100 MICROGRAM DAILY (1 TABLET DAILY)
     Route: 048
  12. ZYRTEC [Concomitant]
     Active Substance: CETIRIZINE HYDROCHLORIDE
     Indication: Product used for unknown indication
     Dosage: 10 MG DAILY
     Route: 048
  13. KURVELO [Concomitant]
     Active Substance: ETHINYL ESTRADIOL\LEVONORGESTREL
     Indication: Product used for unknown indication
     Dosage: UNK
  14. SYNTHROID [Concomitant]
     Active Substance: LEVOTHYROXINE SODIUM
     Indication: Product used for unknown indication
     Dosage: 100 MICROGRAM, ONCE DAILY (QD)(MORNING)
  15. DILANTIN [Concomitant]
     Active Substance: PHENYTOIN
     Indication: Seizure cluster
     Dosage: 200 MILLIGRAM QHS EVENING DAILY
  16. DILANTIN [Concomitant]
     Active Substance: PHENYTOIN
     Indication: Lennox-Gastaut syndrome

REACTIONS (12)
  - Dehydration [Recovered/Resolved]
  - Decreased appetite [Recovered/Resolved]
  - Urine output decreased [Recovered/Resolved]
  - Seizure cluster [Unknown]
  - Weight decreased [Unknown]
  - Tremor [Unknown]
  - Cognitive disorder [Unknown]
  - Speech disorder [Unknown]
  - Dizziness [Unknown]
  - Dysarthria [Unknown]
  - Coordination abnormal [Unknown]
  - Balance disorder [Unknown]

NARRATIVE: CASE EVENT DATE: 20240101
